FAERS Safety Report 6731674 (Version 20)
Quarter: 2013Q3

REPORT INFORMATION
  Report Type: Spontaneous
  Country: US (occurrence: US)
  Receive Date: 20080820
  Receipt Date: 20130805
  Transmission Date: 20140515
  Serious: Yes (Death, Hospitalization, Other)
  Sender: FDA-Public Use
  Company Number: PHEH2008US07038

PATIENT
  Age: 67 Year
  Sex: Female
  Weight: 70.3 kg

DRUGS (27)
  1. AREDIA [Suspect]
     Indication: HYPERCALCAEMIA
     Dosage: 90 MG, QMO
     Route: 042
     Dates: start: 199801, end: 19990625
  2. ZOMETA [Suspect]
     Indication: METASTASES TO BONE
     Dosage: 4 MG
     Route: 042
  3. RADIATION THERAPY [Suspect]
     Dosage: 3250 GY, TOTAL
     Dates: start: 19980505, end: 20060419
  4. RADIATION THERAPY [Suspect]
     Dosage: 3000CGYS / TOTAL
     Dates: start: 20060424, end: 20060512
  5. RADIATION THERAPY [Suspect]
     Dosage: 3000CGYS / TOTAL
     Dates: start: 20060620, end: 20060704
  6. VANCOMYCIN [Concomitant]
  7. ERTAPENEM [Concomitant]
  8. NEUPOGEN [Concomitant]
  9. ARIMIDEX ^ASTRAZENECA^ [Concomitant]
     Indication: NEOPLASM MALIGNANT
  10. LESCOL [Concomitant]
  11. METOPROLOL TARTRATE [Concomitant]
     Indication: HYPERTENSION
  12. PROZAC [Concomitant]
  13. CHEMOTHERAPEUTICS NOS [Concomitant]
  14. TAMOXIFEN [Concomitant]
     Dates: start: 19980224
  15. PROTONIX ^PHARMACIA^ [Concomitant]
  16. MEVACOR [Concomitant]
  17. QUINIDINE [Concomitant]
     Indication: HYPERTENSION
  18. PREVACID [Concomitant]
  19. LOVENOX [Concomitant]
  20. PREDNISOLONE [Concomitant]
  21. FENTANYL [Concomitant]
  22. CLONIDINE [Concomitant]
  23. ZOLPIDEM [Concomitant]
  24. CELEBREX [Concomitant]
  25. DILAUDID [Concomitant]
     Dosage: 4 MG, Q2H
  26. PREMARIN [Concomitant]
     Dosage: 1.25 MG, TID
  27. ATIVAN [Concomitant]
     Dosage: 1 MG, Q4H

REACTIONS (112)
  - Cardiac arrest [Fatal]
  - Multi-organ failure [Fatal]
  - Osteonecrosis of jaw [Unknown]
  - Sinus disorder [Unknown]
  - Pain in jaw [Unknown]
  - Impaired healing [Unknown]
  - Inflammation [Unknown]
  - Oral disorder [Unknown]
  - Fistula [Unknown]
  - Exposed bone in jaw [Unknown]
  - Paranasal sinus mucosal hypertrophy [Unknown]
  - Osteomyelitis acute [Unknown]
  - Bone cancer [Unknown]
  - Sepsis [Unknown]
  - Pancytopenia [Unknown]
  - Chronic sinusitis [Unknown]
  - Acute sinusitis [Unknown]
  - Bone pain [Unknown]
  - Hypercalcaemia [Unknown]
  - Rib fracture [Unknown]
  - Renal failure [Unknown]
  - Breast cancer recurrent [Unknown]
  - Bone marrow failure [Unknown]
  - Osteosarcoma metastatic [Unknown]
  - Fall [Unknown]
  - Humerus fracture [Unknown]
  - Syncope [Unknown]
  - Atelectasis [Unknown]
  - Pleural effusion [Unknown]
  - Hip fracture [Unknown]
  - Urosepsis [Unknown]
  - Intervertebral disc protrusion [Unknown]
  - Renal cyst [Unknown]
  - Hepatic cyst [Unknown]
  - Compression fracture [Unknown]
  - Dysphagia [Unknown]
  - Cerebral atrophy [Unknown]
  - Anaemia [Unknown]
  - Arteriosclerosis coronary artery [Unknown]
  - Dyspnoea [Unknown]
  - Metastatic malignant melanoma [Unknown]
  - Osteopenia [Unknown]
  - Hyperkalaemia [Unknown]
  - Metabolic acidosis [Unknown]
  - Hypoalbuminaemia [Unknown]
  - Hypophosphataemia [Unknown]
  - Mitral valve incompetence [Unknown]
  - Aortic valve incompetence [Unknown]
  - Tricuspid valve incompetence [Unknown]
  - Left atrial dilatation [Unknown]
  - Facial bones fracture [Unknown]
  - Oroantral fistula [Unknown]
  - Osteomalacia [Unknown]
  - Renal failure chronic [Unknown]
  - Diastolic dysfunction [Unknown]
  - Aortic arteriosclerosis [Unknown]
  - Radius fracture [Unknown]
  - Ascites [Unknown]
  - Dementia [Unknown]
  - Constipation [Unknown]
  - Metastases to pelvis [Unknown]
  - Asthenia [Unknown]
  - Wrist fracture [Unknown]
  - Bronchitis [Unknown]
  - Osteoma [Unknown]
  - Tooth abscess [Unknown]
  - Renal artery arteriosclerosis [Unknown]
  - Nephrosclerosis [Unknown]
  - Epistaxis [Unknown]
  - Vertebral foraminal stenosis [Unknown]
  - Contusion [Unknown]
  - Lip swelling [Unknown]
  - Hand fracture [Unknown]
  - Excessive granulation tissue [Unknown]
  - Pyrexia [Unknown]
  - Gingival bleeding [Unknown]
  - Pulmonary mass [Unknown]
  - Serum ferritin increased [Unknown]
  - Pathological fracture [Unknown]
  - Hypocalcaemia [Unknown]
  - Nephropathy [Unknown]
  - Dehydration [Unknown]
  - Renal failure acute [Unknown]
  - Injury [Unknown]
  - Osteosclerosis [Unknown]
  - Bone fragmentation [Unknown]
  - Osteolysis [Unknown]
  - Pleural fibrosis [Unknown]
  - Lung consolidation [Unknown]
  - Lung infiltration [Unknown]
  - Nodule [Unknown]
  - Periodontal disease [Unknown]
  - Cardiomegaly [Unknown]
  - Nasal septum deviation [Unknown]
  - Exostosis [Unknown]
  - Left ventricular hypertrophy [Unknown]
  - Cardiac septal hypertrophy [Unknown]
  - Atrioventricular block first degree [Unknown]
  - Chest pain [Unknown]
  - Sinus bradycardia [Unknown]
  - Cardiac murmur [Unknown]
  - Azotaemia [Unknown]
  - Sinus tachycardia [Unknown]
  - Hypotension [Unknown]
  - Back pain [Unknown]
  - Gait disturbance [Unknown]
  - QRS axis abnormal [Unknown]
  - Mitral valve calcification [Unknown]
  - Aortic valve sclerosis [Unknown]
  - Pleurisy [Unknown]
  - Facial pain [Unknown]
  - Mucosal inflammation [Unknown]
